FAERS Safety Report 7230342-6 (Version None)
Quarter: 2011Q1

REPORT INFORMATION
  Report Type: 
  Country: None (occurrence: None)
  Receive Date: 20110118
  Receipt Date: 20110107
  Transmission Date: 20110831
  Serious: Yes (Death, Life-Threatening, Hospitalization)
  Sender: FDA-Public Use
  Company Number: FR-JNJFOC-20080900615

PATIENT
  Sex: Male
  Weight: 3.33 kg

DRUGS (10)
  1. REMICADE [Suspect]
     Route: 050
  2. CALCIUM FOLINATE [Concomitant]
  3. REMICADE [Suspect]
     Route: 050
  4. REMICADE [Suspect]
     Indication: DRUG EXPOSURE DURING PREGNANCY
     Route: 050
  5. REMICADE [Suspect]
     Route: 050
  6. AZATHIOPRINE [Concomitant]
  7. PREDNISOLONE [Concomitant]
  8. MESALAZINE [Concomitant]
  9. FERROUS SULFATE [Concomitant]
  10. ERYTHROMYCIN [Concomitant]

REACTIONS (4)
  - NEONATAL ASPIRATION [None]
  - PULMONARY HYPERTENSION [None]
  - ESCHERICHIA INFECTION [None]
  - HYPOXIA [None]
